FAERS Safety Report 17000530 (Version 2)
Quarter: 2020Q1

REPORT INFORMATION
  Report Type: Spontaneous
  Country: US (occurrence: US)
  Receive Date: 20191106
  Receipt Date: 20200108
  Transmission Date: 20200409
  Serious: Yes (Death)
  Sender: FDA-Public Use
  Company Number: US-LEXICON PHARMACEUTICALS, INC-19-1606-01017

PATIENT
  Sex: Male

DRUGS (9)
  1. XERMELO [Suspect]
     Active Substance: TELOTRISTAT ETHYL
     Indication: CARCINOID SYNDROME
     Route: 048
     Dates: start: 20190510
  2. ZENPEP [Concomitant]
     Active Substance: PANCRELIPASE AMYLASE\PANCRELIPASE LIPASE\PANCRELIPASE PROTEASE
  3. XERMELO [Suspect]
     Active Substance: TELOTRISTAT ETHYL
  4. MORPHINE [Concomitant]
     Active Substance: MORPHINE
  5. ATIVAN [Concomitant]
     Active Substance: LORAZEPAM
  6. MEGACE [Concomitant]
     Active Substance: MEGESTROL ACETATE
  7. PHENOBARBITAL. [Concomitant]
     Active Substance: PHENOBARBITAL
  8. OCTREOTIDE. [Concomitant]
     Active Substance: OCTREOTIDE
     Indication: CARCINOID SYNDROME
  9. TYLENOL [Concomitant]
     Active Substance: ACETAMINOPHEN

REACTIONS (2)
  - Disease progression [Fatal]
  - Prescribed overdose [Unknown]
